FAERS Safety Report 8394501-1 (Version None)
Quarter: 2012Q2

REPORT INFORMATION
  Report Type: 
  Country: None (occurrence: None)
  Receive Date: 20120530
  Receipt Date: 20120525
  Transmission Date: 20120825
  Serious: Yes (Other)
  Sender: FDA-Public Use
  Company Number: PHEH2012US010384

PATIENT
  Sex: Female

DRUGS (1)
  1. COMBIPATCH [Suspect]
     Dosage: 0.05/0.14 TWO PER WEEK
     Route: 062
     Dates: start: 20120301

REACTIONS (3)
  - BREAST CYST [None]
  - BREAST TENDERNESS [None]
  - BREAST MASS [None]
